FAERS Safety Report 4378516-6 (Version None)
Quarter: 2004Q2

REPORT INFORMATION
  Report Type: 
  Country: None (occurrence: None)
  Receive Date: 20040609
  Receipt Date: 20040528
  Transmission Date: 20050107
  Serious: Yes (Life-Threatening, Other)
  Sender: FDA-Public Use
  Company Number: GB-JNJFOC-20040600009

PATIENT
  Age: 50 Year
  Sex: Female

DRUGS (6)
  1. REMICADE (INFLIXIMAB, RECOMBINANT) LYOPHILIZED POWDER [Suspect]
     Indication: RHEUMATOID ARTHRITIS
     Dosage: 11 INFUSIONS
     Dates: start: 20010101
  2. ISONIAZID [Concomitant]
  3. CYCLOPHOSPHAMIDE [Concomitant]
  4. IMMUNE GLOBULIN INTRAVENOUS (HUMAN) [Concomitant]
  5. PREDNISOLONE [Concomitant]
  6. METHYLPREDNISOLONE (METHYLPRESNISOLONE) [Concomitant]

REACTIONS (2)
  - OVARIAN CANCER METASTATIC [None]
  - PLEURAL EFFUSION [None]
